FAERS Safety Report 6181747-6 (Version None)
Quarter: 2009Q2

REPORT INFORMATION
  Report Type: 
  Country: None (occurrence: None)
  Receive Date: 20090501
  Receipt Date: 20090422
  Transmission Date: 20091009
  Serious: Yes (Hospitalization)
  Sender: FDA-Public Use
  Company Number: 1000006020

PATIENT
  Age: 61 Year
  Sex: Female

DRUGS (9)
  1. ESCITALOPRAM [Suspect]
     Indication: ANXIETY
     Dosage: 30 MG (30 MG,1 IN 1 D),ORAL
     Route: 048
     Dates: start: 20090101
  2. ESCITALOPRAM [Suspect]
     Indication: ANXIETY
     Dosage: 10 MG (10 MG,1 IN 1 D),ORAL
     Route: 048
     Dates: start: 20090101
  3. HALDOL (TABLETS) [Concomitant]
  4. ALBYL-E (TABLETS) [Concomitant]
  5. ATACAND [Concomitant]
  6. SOBRIL (TABLETS) [Concomitant]
  7. PERSANTIN RETARD (TABLETS) [Concomitant]
  8. ACETAMINOPHEN [Concomitant]
  9. SIMVASTATIN [Concomitant]

REACTIONS (3)
  - GRAND MAL CONVULSION [None]
  - HYPONATRAEMIA [None]
  - OVERDOSE [None]
